FAERS Safety Report 5740366-3 (Version None)
Quarter: 2008Q2

REPORT INFORMATION
  Report Type: 
  Country: None (occurrence: None)
  Receive Date: 20080516
  Receipt Date: 20080507
  Transmission Date: 20081010
  Serious: Yes (Other)
  Sender: FDA-Public Use
  Company Number: US-BAYER-200811776BCC

PATIENT
  Age: 60 Year
  Sex: Male
  Weight: 88 kg

DRUGS (12)
  1. ALEVE [Suspect]
     Indication: RIB FRACTURE
     Dosage: TOTAL DAILY DOSE: 220 MG  UNIT DOSE: 220 MG
     Route: 048
     Dates: start: 20070101
  2. TYLENOL [Concomitant]
  3. KLONOPIN [Concomitant]
  4. TEGRETOL [Concomitant]
  5. NEXIUM [Concomitant]
  6. PRILOSEC [Concomitant]
  7. FLEX-A-MIN [Concomitant]
  8. SOLGAR CALCIUM [Concomitant]
  9. ASCORBIC ACID [Concomitant]
  10. VITAMIN E [Concomitant]
  11. GARLIQUE [Concomitant]
  12. LECITHIN [Concomitant]

REACTIONS (1)
  - ANAL HAEMORRHAGE [None]
